FAERS Safety Report 9871804 (Version 1)
Quarter: 2014Q1

REPORT INFORMATION
  Report Type: Spontaneous
  Country: GH (occurrence: GH)
  Receive Date: 20140205
  Receipt Date: 20140205
  Transmission Date: 20141002
  Serious: Yes (Hospitalization, Other)
  Sender: FDA-Public Use
  Company Number: GH-ROXANE LABORATORIES, INC.-2014-RO-00144RO

PATIENT
  Age: 10 Year
  Sex: Female
  Weight: 47 kg

DRUGS (2)
  1. MEFLOQUINE [Suspect]
     Indication: MALARIA PROPHYLAXIS
  2. ARTESUNATE-AMODIAQUINE [Suspect]
     Indication: PYREXIA

REACTIONS (2)
  - Sudden visual loss [Recovered/Resolved]
  - Pyrexia [Recovered/Resolved]
